FAERS Safety Report 7725092 (Version 2)
Quarter: 2013Q3

REPORT INFORMATION
  Report Type: Spontaneous
  Country: US (occurrence: US)
  Receive Date: 20101221
  Receipt Date: 20130724
  Transmission Date: 20140515
  Serious: Yes (Hospitalization)
  Sender: FDA-Public Use
  Company Number: US-MYLANLABS-2010S1022743

PATIENT
  Age: 20 Year
  Sex: Male

DRUGS (4)
  1. CEFTRIAXONE [Suspect]
     Indication: TENOSYNOVITIS
     Dosage: 1 DOSE
     Route: 065
  2. DOXYCYCLINE [Suspect]
     Indication: TENOSYNOVITIS
     Route: 065
  3. VANCOMYCIN [Suspect]
     Indication: TENOSYNOVITIS
     Dosage: 1 PRE-OP DOSE
     Route: 065
  4. SEPTRA [Suspect]
     Indication: TENOSYNOVITIS
     Route: 065

REACTIONS (2)
  - Drug reaction with eosinophilia and systemic symptoms [Recovered/Resolved]
  - Human herpesvirus 6 infection [Recovered/Resolved]
